FAERS Safety Report 13300384 (Version 1)
Quarter: 2017Q1

REPORT INFORMATION
  Report Type: Spontaneous
  Country: US (occurrence: US)
  Receive Date: 20170307
  Receipt Date: 20170307
  Transmission Date: 20170428
  Serious: Yes (Death)
  Sender: FDA-Public Use
  Company Number: US-ROCHE-1902977

PATIENT
  Age: 10 Year
  Sex: Male

DRUGS (1)
  1. AVASTIN [Suspect]
     Active Substance: BEVACIZUMAB
     Indication: NEOPLASM MALIGNANT
     Dosage: FORM STRENGTH: 4 ML/VIAL
     Route: 042
     Dates: start: 20160829

REACTIONS (1)
  - Death [Fatal]

NARRATIVE: CASE EVENT DATE: 20170227
